FAERS Safety Report 25721144 (Version 2)
Quarter: 2025Q3

REPORT INFORMATION
  Report Type: Spontaneous
  Country: CA (occurrence: CA)
  Receive Date: 20250825
  Receipt Date: 20250905
  Transmission Date: 20251021
  Serious: Yes (Other)
  Sender: CELLTRION
  Company Number: CA-PFIZER INC-202201261778

PATIENT

DRUGS (40)
  1. INFLECTRA [Suspect]
     Active Substance: INFLIXIMAB-DYYB
     Indication: Crohn^s disease
     Dates: start: 20220912
  2. INFLECTRA [Suspect]
     Active Substance: INFLIXIMAB-DYYB
     Dates: start: 20220928
  3. INFLECTRA [Suspect]
     Active Substance: INFLIXIMAB-DYYB
     Dates: start: 20221026
  4. INFLECTRA [Suspect]
     Active Substance: INFLIXIMAB-DYYB
     Dates: start: 20221221
  5. INFLECTRA [Suspect]
     Active Substance: INFLIXIMAB-DYYB
     Dates: start: 20230215
  6. INFLECTRA [Suspect]
     Active Substance: INFLIXIMAB-DYYB
     Dates: start: 20230412, end: 20230412
  7. INFLECTRA [Suspect]
     Active Substance: INFLIXIMAB-DYYB
     Dates: start: 20230607, end: 20230607
  8. INFLECTRA [Suspect]
     Active Substance: INFLIXIMAB-DYYB
     Dates: start: 20230731
  9. INFLECTRA [Suspect]
     Active Substance: INFLIXIMAB-DYYB
     Dates: start: 20230925
  10. INFLECTRA [Suspect]
     Active Substance: INFLIXIMAB-DYYB
     Dates: start: 20231120
  11. INFLECTRA [Suspect]
     Active Substance: INFLIXIMAB-DYYB
     Dates: start: 20240115
  12. INFLECTRA [Suspect]
     Active Substance: INFLIXIMAB-DYYB
     Dates: start: 20240311
  13. INFLECTRA [Suspect]
     Active Substance: INFLIXIMAB-DYYB
     Dates: start: 20240531
  14. INFLECTRA [Suspect]
     Active Substance: INFLIXIMAB-DYYB
     Dates: start: 20240712
  15. INFLECTRA [Suspect]
     Active Substance: INFLIXIMAB-DYYB
     Dates: start: 20240823
  16. INFLECTRA [Suspect]
     Active Substance: INFLIXIMAB-DYYB
     Dates: start: 20241004
  17. INFLECTRA [Suspect]
     Active Substance: INFLIXIMAB-DYYB
     Dates: start: 20241114
  18. INFLECTRA [Suspect]
     Active Substance: INFLIXIMAB-DYYB
     Dates: start: 20241224
  19. INFLECTRA [Suspect]
     Active Substance: INFLIXIMAB-DYYB
     Dates: start: 20250210
  20. INFLECTRA [Suspect]
     Active Substance: INFLIXIMAB-DYYB
     Dates: start: 20250326
  21. INFLECTRA [Suspect]
     Active Substance: INFLIXIMAB-DYYB
  22. INFLECTRA [Suspect]
     Active Substance: INFLIXIMAB-DYYB
  23. INFLECTRA [Suspect]
     Active Substance: INFLIXIMAB-DYYB
  24. INFLECTRA [Suspect]
     Active Substance: INFLIXIMAB-DYYB
  25. INFLECTRA [Suspect]
     Active Substance: INFLIXIMAB-DYYB
  26. INFLECTRA [Suspect]
     Active Substance: INFLIXIMAB-DYYB
  27. INFLECTRA [Suspect]
     Active Substance: INFLIXIMAB-DYYB
  28. INFLECTRA [Suspect]
     Active Substance: INFLIXIMAB-DYYB
  29. INFLECTRA [Suspect]
     Active Substance: INFLIXIMAB-DYYB
  30. INFLECTRA [Suspect]
     Active Substance: INFLIXIMAB-DYYB
  31. INFLECTRA [Suspect]
     Active Substance: INFLIXIMAB-DYYB
  32. INFLECTRA [Suspect]
     Active Substance: INFLIXIMAB-DYYB
  33. INFLECTRA [Suspect]
     Active Substance: INFLIXIMAB-DYYB
  34. INFLECTRA [Suspect]
     Active Substance: INFLIXIMAB-DYYB
  35. INFLECTRA [Suspect]
     Active Substance: INFLIXIMAB-DYYB
  36. INFLECTRA [Suspect]
     Active Substance: INFLIXIMAB-DYYB
  37. INFLECTRA [Suspect]
     Active Substance: INFLIXIMAB-DYYB
  38. INFLECTRA [Suspect]
     Active Substance: INFLIXIMAB-DYYB
  39. INFLECTRA [Suspect]
     Active Substance: INFLIXIMAB-DYYB
  40. INFLECTRA [Suspect]
     Active Substance: INFLIXIMAB-DYYB

REACTIONS (14)
  - Urinary tract infection [Not Recovered/Not Resolved]
  - Listeriosis [Not Recovered/Not Resolved]
  - Drug specific antibody present [Not Recovered/Not Resolved]
  - Mastitis [Recovered/Resolved]
  - Condition aggravated [Not Recovered/Not Resolved]
  - Aphthous ulcer [Not Recovered/Not Resolved]
  - Anal fissure [Recovered/Resolved]
  - Arthralgia [Recovered/Resolved]
  - Herpes zoster [Not Recovered/Not Resolved]
  - Maternal exposure during pregnancy [Unknown]
  - Product use issue [Unknown]
  - Off label use [Unknown]
  - Off label use [Unknown]
  - Off label use [Unknown]

NARRATIVE: CASE EVENT DATE: 20221026
